FAERS Safety Report 8623050 (Version 4)
Quarter: 2013Q1

REPORT INFORMATION
  Report Type: Report from Study
  Country: US (occurrence: US)
  Receive Date: 20120620
  Receipt Date: 20130103
  Transmission Date: 20140127
  Serious: Yes (Hospitalization)
  Sender: FDA-Public Use
  Company Number: US-BRISTOL-MYERS SQUIBB COMPANY-16677726

PATIENT
  Age: 73 Year
  Sex: Male
  Weight: 77.7 kg

DRUGS (16)
  1. PACLITAXEL [Suspect]
     Indication: NON-SMALL CELL LUNG CANCER
     Dates: start: 20120320
  2. CARBOPLATIN [Suspect]
     Indication: NON-SMALL CELL LUNG CANCER
     Dates: start: 20120320
  3. LOPRESSOR [Concomitant]
  4. LORAZEPAM [Concomitant]
  5. LOTREL [Concomitant]
  6. METAMUCIL [Concomitant]
  7. MIRALAX [Concomitant]
  8. NITROGLYCERIN [Concomitant]
  9. PREVACID [Concomitant]
  10. PROCHLORPERAZINE MALEATE [Concomitant]
  11. ASPIRIN [Concomitant]
  12. AVODART [Concomitant]
  13. BUPROPION [Concomitant]
  14. DEXAMETHASONE [Concomitant]
  15. FLOMAX [Concomitant]
  16. GLIPIZIDE [Concomitant]

REACTIONS (1)
  - Non-cardiac chest pain [Recovered/Resolved]
